FAERS Safety Report 9617815 (Version 1)
Quarter: 2013Q4

REPORT INFORMATION
  Report Type: Spontaneous
  Country: US (occurrence: US)
  Receive Date: 20131011
  Receipt Date: 20131011
  Transmission Date: 20140711
  Serious: Yes (Other)
  Sender: FDA-Public Use
  Company Number: US-ALLERGAN-1315657US

PATIENT
  Age: 69 Year
  Sex: Female

DRUGS (1)
  1. OZURDEX [Suspect]
     Indication: CYSTOID MACULAR OEDEMA
     Dosage: 0.7 MG, SINGLE
     Route: 031

REACTIONS (4)
  - Corneal degeneration [Unknown]
  - Device dislocation [Recovered/Resolved with Sequelae]
  - Visual acuity reduced [Recovering/Resolving]
  - Corneal oedema [Unknown]
